FAERS Safety Report 8757758 (Version 1)
Quarter: 2012Q4

REPORT INFORMATION
  Report Type: 
  Country: US (occurrence: US)
  Receive Date: 20120828
  Receipt Date: 20120828
  Transmission Date: 20130627
  Serious: No
  Sender: FDA-Public Use
  Company Number: US-TEVA-355678USA

PATIENT
  Sex: Female
  Weight: 82.63 kg

DRUGS (6)
  1. NUVIGIL [Suspect]
     Indication: SOMNOLENCE
     Dosage: 250 Milligram Daily;
     Route: 048
     Dates: start: 201010
  2. LEXAPRO [Concomitant]
     Indication: DEPRESSION
     Dosage: 30 Milligram Daily;
     Route: 048
  3. LAMICTAL [Concomitant]
     Indication: DEPRESSION
     Dosage: 200 Milligram Daily;
     Route: 048
  4. SYNTHROID [Concomitant]
     Indication: HYPOTHYROIDISM
     Dosage: 50 Milligram Daily;
     Route: 048
  5. ZOCOR [Concomitant]
     Indication: BLOOD CHOLESTEROL INCREASED
     Route: 048
  6. SAPHRIS [Concomitant]
     Indication: DEPRESSION
     Dosage: 20 Milligram Daily;
     Route: 048

REACTIONS (3)
  - Depression [Not Recovered/Not Resolved]
  - Anxiety [Not Recovered/Not Resolved]
  - Mania [Not Recovered/Not Resolved]
